FAERS Safety Report 7983644-X (Version None)
Quarter: 2011Q4

REPORT INFORMATION
  Report Type: 
  Country: None (occurrence: None)
  Receive Date: 20111215
  Receipt Date: 20111208
  Transmission Date: 20120403
  Serious: Yes (Hospitalization)
  Sender: FDA-Public Use
  Company Number: US-B.I. PHARMACEUTICALS,INC./RIDGEFIELD-2011-BP-26229BP

PATIENT
  Age: 75 Year
  Sex: Male

DRUGS (6)
  1. ALLOPURINOL [Concomitant]
  2. LASIX [Concomitant]
  3. PRADAXA [Suspect]
     Indication: ATRIAL FIBRILLATION
     Dosage: 300 MG
     Dates: start: 20110501, end: 20111113
  4. METOLAZONE [Concomitant]
  5. BENAZEPRIL HYDROCHLORIDE [Concomitant]
  6. CEFDINIR [Concomitant]

REACTIONS (3)
  - RENAL FAILURE ACUTE [None]
  - WOUND SEPSIS [None]
  - COAGULOPATHY [None]
